FAERS Safety Report 8180545-1 (Version None)
Quarter: 2012Q1

REPORT INFORMATION
  Report Type: 
  Country: None (occurrence: None)
  Receive Date: 20120302
  Receipt Date: 20120126
  Transmission Date: 20120608
  Serious: Yes (Other)
  Sender: FDA-Public Use
  Company Number: US-JNJFOC-20120111876

PATIENT
  Sex: Male

DRUGS (5)
  1. REMICADE [Suspect]
     Route: 042
     Dates: start: 20080301
  2. REMICADE [Suspect]
     Indication: PSORIASIS
     Route: 042
     Dates: start: 20120101
  3. REMICADE [Suspect]
     Route: 042
     Dates: start: 20120224
  4. GOLIMUMAB [Suspect]
     Indication: PSORIASIS
     Route: 058
     Dates: start: 20120209
  5. STELARA [Suspect]
     Indication: PSORIASIS
     Route: 058
     Dates: start: 20120113, end: 20120209

REACTIONS (10)
  - PSORIASIS [None]
  - MOUTH ULCERATION [None]
  - PSORIATIC ARTHROPATHY [None]
  - DRUG INEFFECTIVE [None]
  - RASH [None]
  - VOMITING [None]
  - PYREXIA [None]
  - UVEITIS [None]
  - ORAL CANDIDIASIS [None]
  - ARTHRALGIA [None]
